FAERS Safety Report 24047419 (Version 2)
Quarter: 2024Q3

REPORT INFORMATION
  Report Type: Spontaneous
  Country: IT (occurrence: IT)
  Receive Date: 20240703
  Receipt Date: 20240715
  Transmission Date: 20241017
  Serious: Yes (Other)
  Sender: MYLAN
  Company Number: IT-002147023-NVSC2024IT129154

PATIENT
  Age: 16 Year
  Sex: Female

DRUGS (1)
  1. FINGOLIMOD [Suspect]
     Active Substance: FINGOLIMOD
     Indication: Relapsing-remitting multiple sclerosis
     Dosage: 0.5 MILLIGRAM, QD
     Route: 065
     Dates: start: 202311, end: 20240701

REACTIONS (3)
  - Multiple sclerosis [Recovered/Resolved]
  - IIIrd nerve paralysis [Recovered/Resolved]
  - Drug ineffective [Unknown]
